FAERS Safety Report 9440798 (Version 1)
Quarter: 2013Q3

REPORT INFORMATION
  Report Type: Spontaneous
  Country: SG (occurrence: SG)
  Receive Date: 20130805
  Receipt Date: 20130805
  Transmission Date: 20140515
  Serious: Yes (Other)
  Sender: FDA-Public Use
  Company Number: SG-ELI_LILLY_AND_COMPANY-SG201308000138

PATIENT
  Sex: Male

DRUGS (2)
  1. CIALIS [Suspect]
     Dosage: 20 MG, QD
  2. LIPITOR [Concomitant]
     Dosage: 10 MG, UNKNOWN
     Dates: start: 2010

REACTIONS (2)
  - Blood creatine phosphokinase increased [Unknown]
  - Palpitations [Unknown]
